FAERS Safety Report 8620008 (Version 3)
Quarter: 2013Q2

REPORT INFORMATION
  Report Type: Spontaneous
  Country: US (occurrence: US)
  Receive Date: 20120618
  Receipt Date: 20130613
  Transmission Date: 20140414
  Serious: Yes (Hospitalization, Other)
  Sender: FDA-Public Use
  Company Number: US-PFIZER INC-2012141327

PATIENT
  Age: 65 Year
  Sex: Female
  Weight: 102 kg

DRUGS (7)
  1. LYRICA [Suspect]
     Indication: PAIN IN EXTREMITY
     Dosage: UNK
  2. LYRICA [Suspect]
     Indication: MUSCLE SPASMS
     Dosage: 75 MG, 3X/DAY
     Dates: start: 2011
  3. LYRICA [Suspect]
     Dosage: 50 MG, 4X/DAY
  4. METRONIDAZOLE [Suspect]
     Indication: UTERINE PROLAPSE
     Dosage: UNK
     Dates: start: 201205
  5. METRONIDAZOLE [Suspect]
     Indication: URINARY TRACT DISORDER
  6. GENTAMICIN SULFATE [Suspect]
     Indication: UTERINE PROLAPSE
     Dosage: UNK
     Dates: start: 201205
  7. GENTAMICIN SULFATE [Suspect]
     Indication: URINARY TRACT DISORDER

REACTIONS (9)
  - Clostridium difficile infection [Recovered/Resolved]
  - Uterine prolapse [Unknown]
  - Intervertebral disc protrusion [Unknown]
  - Urinary tract disorder [Unknown]
  - Granuloma annulare [Not Recovered/Not Resolved]
  - Immune system disorder [Unknown]
  - Drug hypersensitivity [Unknown]
  - Intentional drug misuse [Unknown]
  - Drug ineffective [Unknown]
